FAERS Safety Report 19505026 (Version 1)
Quarter: 2021Q3

REPORT INFORMATION
  Report Type: Spontaneous
  Country: US (occurrence: US)
  Receive Date: 20210707
  Receipt Date: 20210707
  Transmission Date: 20211014
  Serious: No
  Sender: FDA-Public Use
  Company Number: US-PURDUE-USA-2021-0251091

PATIENT
  Sex: Male

DRUGS (1)
  1. DRONABINOL CAPSULES [Suspect]
     Active Substance: DRONABINOL
     Indication: AGGRESSION
     Dosage: 5 MG, UNK
     Route: 048

REACTIONS (1)
  - Off label use [Unknown]
